FAERS Safety Report 5120178-4 (Version None)
Quarter: 2006Q4

REPORT INFORMATION
  Report Type: 
  Country: None (occurrence: None)
  Receive Date: 20061002
  Receipt Date: 20061002
  Transmission Date: 20070319
  Serious: Yes (Life-Threatening, Hospitalization)
  Sender: FDA-Public Use
  Company Number: None

PATIENT
  Age: 70 Year
  Sex: Male
  Weight: 72 kg

DRUGS (1)
  1. ZYVOX [Suspect]
     Indication: DEVICE RELATED INFECTION
     Dosage: 600 MG TWICE DAILY PO
     Route: 048

REACTIONS (8)
  - ANAEMIA [None]
  - CARDIOVASCULAR DISORDER [None]
  - COAGULOPATHY [None]
  - HYPOTENSION [None]
  - MULTI-ORGAN FAILURE [None]
  - RENAL DISORDER [None]
  - SEPSIS [None]
  - THROMBOCYTOPENIA [None]
